FAERS Safety Report 25792333 (Version 3)
Quarter: 2025Q4

REPORT INFORMATION
  Report Type: Spontaneous
  Country: CA (occurrence: CA)
  Receive Date: 20250911
  Receipt Date: 20251017
  Transmission Date: 20260118
  Serious: Yes (Hospitalization, Other)
  Sender: PFIZER
  Company Number: CA-PFIZER INC-202201271218

PATIENT
  Age: 76 Year
  Sex: Male

DRUGS (13)
  1. RUXIENCE [Suspect]
     Active Substance: RITUXIMAB-PVVR
     Indication: Rheumatoid arthritis
     Dosage: 500 MG, EVERY 6 MONTHS (DAY 1 AND 15)
     Route: 042
     Dates: start: 20221028, end: 20221028
  2. RUXIENCE [Suspect]
     Active Substance: RITUXIMAB-PVVR
     Dosage: 1000 MG, DAY 15
     Route: 042
     Dates: start: 20230907
  3. RUXIENCE [Suspect]
     Active Substance: RITUXIMAB-PVVR
     Dosage: 1000 MG, DAY 1
     Route: 042
     Dates: start: 20240226, end: 20240226
  4. RUXIENCE [Suspect]
     Active Substance: RITUXIMAB-PVVR
     Dosage: 500 MG, EVERY 6 MONTHS (DAY 1 AND 15)
     Route: 042
     Dates: start: 20240829
  5. RUXIENCE [Suspect]
     Active Substance: RITUXIMAB-PVVR
     Dosage: 1000 MG, AFTER 3 WEEKS (PRESCRIBED DAY 1 AND DAY 15 EVERY 6 MONTHS)
     Route: 042
     Dates: start: 20240919, end: 20240919
  6. RUXIENCE [Suspect]
     Active Substance: RITUXIMAB-PVVR
     Dosage: 500MG AFTER 5 MONTHS
     Route: 042
     Dates: start: 20250211
  7. RUXIENCE [Suspect]
     Active Substance: RITUXIMAB-PVVR
     Dosage: 500 MG EVERY 6 MONTHS (DAY 1 AND DAY 15)
     Route: 042
     Dates: start: 20250225
  8. RUXIENCE [Suspect]
     Active Substance: RITUXIMAB-PVVR
     Dosage: 500 MG, SUBSEQUENT DAY 15 (EVERY 6 MONTHS, DAY 1 AND 15)
     Route: 042
     Dates: start: 20251014, end: 20251014
  9. ACETAMINOPHEN [Concomitant]
     Active Substance: ACETAMINOPHEN
     Indication: Premedication
     Dosage: UNK
     Dates: start: 20230907, end: 20230907
  10. AMLODIPINE [Concomitant]
     Active Substance: AMLODIPINE BESYLATE
     Dosage: 1 DF
     Route: 065
  11. HYDROCHLOROTHIAZIDE [Concomitant]
     Active Substance: HYDROCHLOROTHIAZIDE
     Dosage: 1 DF
     Route: 065
  12. METHYLPREDNISOLONE [Concomitant]
     Active Substance: METHYLPREDNISOLONE
     Indication: Premedication
     Dosage: UNK
     Dates: start: 20230907, end: 20230907
  13. METOPROLOL [Concomitant]
     Active Substance: METOPROLOL
     Dosage: 1 DF
     Route: 065

REACTIONS (11)
  - Condition aggravated [Unknown]
  - Cataract [Unknown]
  - Infusion site oedema [Recovered/Resolved]
  - Infusion site erythema [Recovered/Resolved]
  - COVID-19 [Recovering/Resolving]
  - Infusion site extravasation [Recovered/Resolved]
  - Off label use [Unknown]
  - Off label use [Unknown]
  - Intentional product use issue [Unknown]
  - Off label use [Unknown]
  - Product use issue [Unknown]

NARRATIVE: CASE EVENT DATE: 20221028
